FAERS Safety Report 5275459-0 (Version None)
Quarter: 2007Q1

REPORT INFORMATION
  Report Type: 
  Country: None (occurrence: None)
  Receive Date: 20061213
  Receipt Date: 20040511
  Transmission Date: 20070707
  Serious: No
  Sender: FDA-Public Use
  Company Number: 2004UW09743

PATIENT
  Age: 40 Year
  Sex: Female
  Weight: 62.5964 kg

DRUGS (4)
  1. SEROQUEL [Suspect]
     Indication: DEPRESSION
     Dates: start: 20040420
  2. XANAX [Concomitant]
  3. ZYRTEC [Concomitant]
  4. FLONASE [Concomitant]

REACTIONS (3)
  - CONVULSION [None]
  - ILL-DEFINED DISORDER [None]
  - TREMOR [None]
